FAERS Safety Report 5501227-8 (Version None)
Quarter: 2007Q4

REPORT INFORMATION
  Report Type: 
  Country: None (occurrence: None)
  Receive Date: 20071029
  Receipt Date: 20071017
  Transmission Date: 20080405
  Serious: Yes (Other)
  Sender: FDA-Public Use
  Company Number: US-PFIZER INC-2007087944

PATIENT
  Sex: Female
  Weight: 82.6 kg

DRUGS (2)
  1. CHANTIX [Suspect]
     Indication: SMOKING CESSATION THERAPY
     Dates: start: 20070820, end: 20070926
  2. VITAMINS [Concomitant]

REACTIONS (14)
  - CONVULSION [None]
  - DELUSION [None]
  - FALL [None]
  - HEART RATE INCREASED [None]
  - HYPERTENSION [None]
  - INSOMNIA [None]
  - KIDNEY ENLARGEMENT [None]
  - LETHARGY [None]
  - LOSS OF CONSCIOUSNESS [None]
  - NIGHT SWEATS [None]
  - NIGHTMARE [None]
  - POLLAKIURIA [None]
  - SPEECH DISORDER [None]
  - VISION BLURRED [None]
